FAERS Safety Report 13536365 (Version 1)
Quarter: 2017Q2

REPORT INFORMATION
  Report Type: Report from Study
  Country: None (occurrence: BR)
  Receive Date: 20170511
  Receipt Date: 20170511
  Transmission Date: 20170830
  Serious: Yes (Other)
  Sender: FDA-Public Use
  Company Number: BR-ABBVIE-17P-020-1970553-00

PATIENT
  Sex: Female
  Weight: 60 kg

DRUGS (2)
  1. AZATHIOPRINE. [Concomitant]
     Active Substance: AZATHIOPRINE
     Indication: COLITIS
     Route: 048
     Dates: start: 2014
  2. HUMIRA [Suspect]
     Active Substance: ADALIMUMAB
     Indication: CROHN^S DISEASE
     Route: 058
     Dates: start: 20121101

REACTIONS (7)
  - Abdominal pain [Not Recovered/Not Resolved]
  - Diarrhoea haemorrhagic [Unknown]
  - Diarrhoea [Unknown]
  - Rectal obstruction [Unknown]
  - Diarrhoea [Not Recovered/Not Resolved]
  - Flatulence [Not Recovered/Not Resolved]
  - Colitis [Unknown]

NARRATIVE: CASE EVENT DATE: 2015
